FAERS Safety Report 4333901-3 (Version None)
Quarter: 2004Q2

REPORT INFORMATION
  Report Type: 
  Country: None (occurrence: None)
  Receive Date: 20040402
  Receipt Date: 20040329
  Transmission Date: 20050107
  Serious: Yes (Death)
  Sender: FDA-Public Use
  Company Number: HQWYE214029MAR04

PATIENT
  Age: 28 Year
  Sex: Female

DRUGS (4)
  1. INDERAL [Suspect]
  2. ALCOHOL (ETHANOL,) [Suspect]
  3. BENZODIAZEPINE DERIVATIVES (BENZODIAZEPINE DERIVATIVES,) [Suspect]
  4. MEPROBAMATE [Suspect]

REACTIONS (2)
  - INTENTIONAL OVERDOSE [None]
  - THERAPEUTIC AGENT TOXICITY [None]
